FAERS Safety Report 7175898-7 (Version None)
Quarter: 2010Q4

REPORT INFORMATION
  Report Type: 
  Country: None (occurrence: None)
  Receive Date: 20101220
  Receipt Date: 20101122
  Transmission Date: 20110411
  Serious: No
  Sender: FDA-Public Use
  Company Number: US-AMGEN-TCS399104

PATIENT

DRUGS (3)
  1. ENBREL [Suspect]
     Indication: RHEUMATOID ARTHRITIS
     Dosage: 50 MG, QWK
     Route: 058
     Dates: start: 20100210
  2. HYDROXYCHLOROQUINE SULFATE [Concomitant]
     Dosage: 200 MG, 3 TIMES/WK
     Dates: start: 19900101
  3. METHOTREXATE [Concomitant]
     Dosage: 15 MG, QWK
     Dates: start: 20080101

REACTIONS (7)
  - ARTHRALGIA [None]
  - CELLULITIS [None]
  - ERYTHEMA [None]
  - INJECTION SITE SWELLING [None]
  - INJECTION SITE WARMTH [None]
  - JOINT SWELLING [None]
  - MOBILITY DECREASED [None]
